FAERS Safety Report 4619284-X (Version None)
Quarter: 2005Q1

REPORT INFORMATION
  Report Type: 
  Country: None (occurrence: None)
  Receive Date: 20050318
  Receipt Date: 20050318
  Transmission Date: 20050727
  Serious: Yes (Hospitalization)
  Sender: FDA-Public Use
  Company Number: None

PATIENT
  Sex: Female
  Weight: 67.1324 kg

DRUGS (3)
  1. BABY ASPRIN [Suspect]
     Dosage: QD PO [PRIOR TO ADMISSION]
     Route: 048
  2. ACCUPRIL [Concomitant]
  3. ARIMIDEX [Concomitant]

REACTIONS (2)
  - ANAEMIA [None]
  - FAECAL OCCULT BLOOD POSITIVE [None]
